FAERS Safety Report 13325214 (Version 2)
Quarter: 2017Q1

REPORT INFORMATION
  Report Type: Report from Study
  Country: US (occurrence: US)
  Receive Date: 20170310
  Receipt Date: 20170322
  Transmission Date: 20170428
  Serious: Yes (Hospitalization)
  Sender: FDA-Public Use
  Company Number: US-ACTELION-A-US2017-147877

PATIENT
  Age: 53 Year
  Sex: Female

DRUGS (15)
  1. NITROFURANTOIN. [Concomitant]
     Active Substance: NITROFURANTOIN
  2. REMODULIN [Concomitant]
     Active Substance: TREPROSTINIL
  3. LIDOCAINE. [Concomitant]
     Active Substance: LIDOCAINE
  4. OPSUMIT [Suspect]
     Active Substance: MACITENTAN
     Indication: PULMONARY ARTERIAL HYPERTENSION
     Dosage: 10 MG, QD
     Route: 048
     Dates: start: 20161130
  5. WELLBUTRIN [Concomitant]
     Active Substance: BUPROPION HYDROCHLORIDE
  6. LYRICA [Concomitant]
     Active Substance: PREGABALIN
  7. LIDODERM [Concomitant]
     Active Substance: LIDOCAINE
  8. RESTASIS [Concomitant]
     Active Substance: CYCLOSPORINE
  9. ROPINIROLE. [Concomitant]
     Active Substance: ROPINIROLE
  10. FUROSEMIDE. [Concomitant]
     Active Substance: FUROSEMIDE
  11. ULTRAM [Concomitant]
     Active Substance: TRAMADOL HYDROCHLORIDE
  12. WARFARIN [Concomitant]
     Active Substance: WARFARIN
  13. LISINOPRIL. [Concomitant]
     Active Substance: LISINOPRIL
  14. AMBIEN [Concomitant]
     Active Substance: ZOLPIDEM TARTRATE
  15. TRAZODONE [Concomitant]
     Active Substance: TRAZODONE HYDROCHLORIDE

REACTIONS (8)
  - Nausea [Not Recovered/Not Resolved]
  - Headache [Not Recovered/Not Resolved]
  - Localised infection [Unknown]
  - Malaise [Unknown]
  - Dyspnoea exertional [Unknown]
  - Abdominal distension [Unknown]
  - Nasal congestion [Not Recovered/Not Resolved]
  - Catheter site infection [Unknown]

NARRATIVE: CASE EVENT DATE: 20161207
